FAERS Safety Report 9168855 (Version 1)
Quarter: 2013Q1

REPORT INFORMATION
  Report Type: Spontaneous
  Country: JP (occurrence: None)
  Receive Date: 20130307
  Receipt Date: 20130307
  Transmission Date: 20140127
  Serious: Yes (Other)
  Sender: FDA-Public Use
  Company Number: SYM-2013-01380

PATIENT
  Age: 76 Year
  Sex: Female

DRUGS (3)
  1. FLUOROURACIL (FLUOROURACIL) (FLUOROURACIL) [Suspect]
     Indication: OESOPHAGEAL CARCINOMA
     Dosage: 720 MG, DAILY, UNKNOWN
     Dates: start: 20060725, end: 20060728
  2. CISPLATIN [Suspect]
     Indication: OESOPHAGEAL CARCINOMA
     Dosage: 87 MG, ONCE
     Dates: start: 20060725, end: 20060725
  3. DOCETAXEL [Suspect]

REACTIONS (4)
  - Thrombophlebitis [None]
  - Pyrexia [None]
  - Neutrophil count decreased [None]
  - White blood cell count decreased [None]
